FAERS Safety Report 7165077-1 (Version None)
Quarter: 2010Q4

REPORT INFORMATION
  Report Type: 
  Country: None (occurrence: None)
  Receive Date: 20101215
  Receipt Date: 20091216
  Transmission Date: 20110411
  Serious: No
  Sender: FDA-Public Use
  Company Number: US-AMGEN-TCS380883

PATIENT

DRUGS (2)
  1. ENBREL [Suspect]
     Indication: RHEUMATOID ARTHRITIS
     Dosage: 25 MG, 2 TIMES/WK
     Route: 058
     Dates: start: 20070101
  2. LEFLUNOMIDE [Concomitant]
     Dosage: 25 MG, QD
     Route: 048

REACTIONS (3)
  - INJECTION SITE DISCOMFORT [None]
  - POLYPECTOMY [None]
  - SINUSITIS [None]
